FAERS Safety Report 9675298 (Version 2)
Quarter: 2014Q1

REPORT INFORMATION
  Report Type: Spontaneous
  Country: DK (occurrence: None)
  Receive Date: 20131105
  Receipt Date: 20140128
  Transmission Date: 20141002
  Serious: Yes (Other)
  Sender: FDA-Public Use
  Company Number: AUR-APL-2013-09262

PATIENT
  Age: 69 Year
  Sex: Female

DRUGS (3)
  1. METFORMIN (METFORMIN) [Suspect]
     Indication: DIABETES MELLITUS
     Dosage: 1000MG (500MG, 2 IN 1 D)
  2. VICTOZA (LIRAGLUTIDE) [Suspect]
     Indication: DIABETES MELLITUS
     Dates: start: 201306
  3. ELTROXIN (LEVOTHYROXINE SODIUM) [Concomitant]

REACTIONS (6)
  - Vision blurred [None]
  - Blood glucose decreased [None]
  - Feeling abnormal [None]
  - Daydreaming [None]
  - Pruritus [None]
  - Paraesthesia [None]
